FAERS Safety Report 9844272 (Version 1)
Quarter: 2014Q1

REPORT INFORMATION
  Report Type: Spontaneous
  Country: AU (occurrence: AU)
  Receive Date: 20140127
  Receipt Date: 20140127
  Transmission Date: 20141002
  Serious: Yes (Other)
  Sender: FDA-Public Use
  Company Number: AU-ROCHE-1338848

PATIENT
  Sex: 0

DRUGS (5)
  1. HERCEPTIN [Suspect]
     Indication: METASTATIC NEOPLASM
     Dosage: 6 YEARS AGO AS PART OF TCH CHEMOTHERAPY
     Route: 065
  2. HERCEPTIN [Suspect]
     Dosage: IN COMBINATION WITH ABRAXANE
     Route: 065
  3. CARBOPLATIN [Concomitant]
     Route: 065
  4. TAXOTERE [Concomitant]
     Route: 065
  5. ABRAXANE [Concomitant]
     Indication: METASTATIC NEOPLASM
     Route: 065

REACTIONS (1)
  - Disease progression [Unknown]
